FAERS Safety Report 21652478 (Version 1)
Quarter: 2022Q4

REPORT INFORMATION
  Report Type: Spontaneous
  Country: US (occurrence: None)
  Receive Date: 20221123
  Receipt Date: 20221123
  Transmission Date: 20230113
  Serious: No
  Sender: FDA-Public Use
  Company Number: None

PATIENT
  Age: 46 Year
  Sex: Female

DRUGS (1)
  1. AIMOVIG [Suspect]
     Active Substance: ERENUMAB-AOOE
     Indication: Migraine
     Dosage: OTHER FREQUENCY : Q 28 DAYS;?
     Route: 058
     Dates: start: 20220921

REACTIONS (2)
  - Adverse drug reaction [None]
  - Constipation [None]

NARRATIVE: CASE EVENT DATE: 20221121
